FAERS Safety Report 7095922-X (Version None)
Quarter: 2010Q4

REPORT INFORMATION
  Report Type: 
  Country: None (occurrence: None)
  Receive Date: 20101111
  Receipt Date: 20101103
  Transmission Date: 20110411
  Serious: Yes (Hospitalization)
  Sender: FDA-Public Use
  Company Number: US-BAXTER-2010BH027127

PATIENT
  Age: 72 Year
  Sex: Male

DRUGS (3)
  1. DIANEAL [Suspect]
     Indication: PERITONEAL DIALYSIS
     Route: 033
     Dates: start: 20091101, end: 20101001
  2. DIANEAL [Suspect]
     Route: 033
     Dates: start: 20101001, end: 20101001
  3. DIANEAL [Suspect]
     Dates: start: 20101001

REACTIONS (2)
  - FLUID OVERLOAD [None]
  - WEIGHT INCREASED [None]
